FAERS Safety Report 4600094-4 (Version None)
Quarter: 2005Q1

REPORT INFORMATION
  Report Type: 
  Country: None (occurrence: None)
  Receive Date: 20050303
  Receipt Date: 20050218
  Transmission Date: 20050727
  Serious: Yes (Hospitalization)
  Sender: FDA-Public Use
  Company Number: 2005-BP-02704MX

PATIENT
  Age: 67 Year
  Sex: Male

DRUGS (5)
  1. COMBIVENT [Suspect]
     Indication: CHRONIC OBSTRUCTIVE PULMONARY DISEASE
     Dosage: ( SEE TEXT, 4 PUFFS 4 QIDS (STRENGTH: 0.286/2.423 MG/MG)) IH
     Route: 055
  2. METICORTEN IPREDNISONE) (TA) [Concomitant]
  3. TEOLONG (THEOPHYLLINE) [Concomitant]
  4. PROZAC [Concomitant]
  5. NUMENICAL [Concomitant]

REACTIONS (5)
  - BRONCHOSPASM [None]
  - FUNGAL INFECTION [None]
  - NEURALGIA [None]
  - PNEUMONIA [None]
  - WEIGHT DECREASED [None]
